FAERS Safety Report 16761554 (Version 3)
Quarter: 2020Q4

REPORT INFORMATION
  Report Type: Report from Study
  Country: US (occurrence: US)
  Receive Date: 20190830
  Receipt Date: 20201231
  Transmission Date: 20210113
  Serious: Yes (Hospitalization)
  Sender: FDA-Public Use
  Company Number: US-REGENERON PHARMACEUTICALS, INC.-2019-40394

PATIENT

DRUGS (10)
  1. IBUPROFEN. [Concomitant]
     Active Substance: IBUPROFEN
     Indication: ADVERSE EVENT
     Dosage: 325 MG, PRN
     Route: 048
     Dates: start: 20190116
  2. NAPROXEN. [Concomitant]
     Active Substance: NAPROXEN
     Indication: ADVERSE EVENT
     Dosage: 500 MG, BID
     Route: 048
     Dates: start: 20190301
  3. ONDANSETRON [Concomitant]
     Active Substance: ONDANSETRON
     Indication: PROPHYLAXIS
     Dosage: 8 MG, PRN
     Route: 048
     Dates: start: 20190124
  4. TYLENOL [Concomitant]
     Active Substance: ACETAMINOPHEN
     Indication: ADVERSE EVENT
     Dosage: 1000 MG, PRN
     Route: 048
     Dates: start: 20190425
  5. OXYBUTYNIN. [Concomitant]
     Active Substance: OXYBUTYNIN CHLORIDE
     Indication: ADVERSE EVENT
     Dosage: 10 MG, QD
     Route: 048
     Dates: start: 20190618, end: 20190828
  6. CEMIPLIMAB [Suspect]
     Active Substance: CEMIPLIMAB
     Indication: CERVIX CARCINOMA RECURRENT
     Dosage: 350 MG, Q3W
     Route: 042
     Dates: start: 20190123, end: 20190619
  7. GABAPENTIN. [Concomitant]
     Active Substance: GABAPENTIN
     Indication: ADVERSE EVENT
     Dosage: 100 MG, TID
     Route: 048
     Dates: start: 20190425
  8. CEMIPLIMAB [Suspect]
     Active Substance: CEMIPLIMAB
     Dosage: 350 MG, Q3W
     Route: 042
     Dates: start: 20190807
  9. OXYCODONE [Concomitant]
     Active Substance: OXYCODONE
     Indication: ADVERSE EVENT
     Dosage: 5 MG, PRN
     Route: 048
     Dates: start: 20190425
  10. NAPROXEN. [Concomitant]
     Active Substance: NAPROXEN
     Indication: PRODUCT USED FOR UNKNOWN INDICATION

REACTIONS (2)
  - Kidney infection [Recovered/Resolved]
  - Acute kidney injury [Not Recovered/Not Resolved]

NARRATIVE: CASE EVENT DATE: 20190627
